FAERS Safety Report 7558018-6 (Version None)
Quarter: 2011Q2

REPORT INFORMATION
  Report Type: 
  Country: None (occurrence: None)
  Receive Date: 20110620
  Receipt Date: 20110516
  Transmission Date: 20111010
  Serious: Yes (Hospitalization)
  Sender: FDA-Public Use
  Company Number: PHHY2011IT52813

PATIENT
  Sex: Female

DRUGS (1)
  1. ITRACONAZOLE [Suspect]

REACTIONS (3)
  - RASH [None]
  - FEBRILE NEUTROPENIA [None]
  - CONJUNCTIVITIS [None]
